FAERS Safety Report 6631165-9 (Version None)
Quarter: 2010Q1

REPORT INFORMATION
  Report Type: 
  Country: None (occurrence: None)
  Receive Date: 20100309
  Receipt Date: 20100223
  Transmission Date: 20100710
  Serious: Yes (Other)
  Sender: FDA-Public Use
  Company Number: 231258K08USA

PATIENT
  Age: 21 Year
  Sex: Female

DRUGS (4)
  1. REBIF [Suspect]
     Indication: MULTIPLE SCLEROSIS
     Dosage: 44 MCG, 3 IN 1 WEEKS, SUBCUTANEOUS
     Route: 058
     Dates: start: 20060214
  2. ANTISPASMODIC (ANTISPASMODICS/ ANTICHOLINERGICS) [Concomitant]
  3. TRANQUILIZER (ALL OTHER THERAPEUTIC PRODUCTS) [Concomitant]
  4. PROVIGIL [Concomitant]

REACTIONS (3)
  - MULTIPLE SCLEROSIS RELAPSE [None]
  - SUICIDAL IDEATION [None]
  - THINKING ABNORMAL [None]
